FAERS Safety Report 19366888 (Version 1)
Quarter: 2021Q2

REPORT INFORMATION
  Report Type: Spontaneous
  Country: US (occurrence: US)
  Receive Date: 20210602
  Receipt Date: 20210602
  Transmission Date: 20210717
  Serious: Yes (Other)
  Sender: FDA-Public Use
  Company Number: US-MYLANLABS-2021M1031089

PATIENT
  Age: 57 Year
  Sex: Male

DRUGS (1)
  1. TESTOSTERONE. [Suspect]
     Active Substance: TESTOSTERONE
     Indication: HYPOGONADISM
     Dosage: 200 MILLIGRAM, QW
     Route: 030

REACTIONS (4)
  - Incorrect dose administered [Unknown]
  - Cardiomyopathy [Unknown]
  - Renal impairment [Unknown]
  - Thrombosis [Unknown]
